FAERS Safety Report 5553600-X (Version None)
Quarter: 2007Q4

REPORT INFORMATION
  Report Type: 
  Country: None (occurrence: None)
  Receive Date: 20071212
  Receipt Date: 20071212
  Transmission Date: 20080405
  Serious: Yes (Hospitalization, Disabling)
  Sender: FDA-Public Use
  Company Number: None

PATIENT
  Sex: Female
  Weight: 90.7194 kg

DRUGS (1)
  1. SULFADIAZINE [Suspect]
     Indication: TOXOPLASMOSIS
     Dosage: 500MG 2TABLETS/4X'S A DAY ?
     Dates: start: 20071015, end: 20071029

REACTIONS (6)
  - BACK PAIN [None]
  - DRUG LEVEL FLUCTUATING [None]
  - FALL [None]
  - RASH [None]
  - SPINAL FRACTURE [None]
  - URTICARIA [None]
